FAERS Safety Report 7111511-2 (Version None)
Quarter: 2010Q4

REPORT INFORMATION
  Report Type: 
  Country: None (occurrence: None)
  Receive Date: 20101118
  Receipt Date: 20101110
  Transmission Date: 20110411
  Serious: Yes (Other)
  Sender: FDA-Public Use
  Company Number: CHPA2010US14768

PATIENT
  Age: 50 Year
  Sex: Female
  Weight: 115.65 kg

DRUGS (1)
  1. EXCEDRIN (MIGRAINE) [Suspect]
     Indication: BACK PAIN
     Dosage: 2 CAPLETS IN A DAY
     Route: 048
     Dates: start: 20100908, end: 20100912

REACTIONS (2)
  - ABDOMINAL DISCOMFORT [None]
  - SURGERY [None]
